FAERS Safety Report 7084098-0 (Version None)
Quarter: 2010Q4

REPORT INFORMATION
  Report Type: 
  Country: None (occurrence: None)
  Receive Date: 20101104
  Receipt Date: 20101026
  Transmission Date: 20110411
  Serious: Yes (Hospitalization)
  Sender: FDA-Public Use
  Company Number: FR-WYE-H18508210

PATIENT
  Sex: Female

DRUGS (8)
  1. INIPOMP [Suspect]
     Indication: GASTROOESOPHAGEAL REFLUX DISEASE
     Route: 048
     Dates: end: 20100507
  2. DEROXAT [Suspect]
     Indication: DEPRESSION
     Route: 048
     Dates: end: 20100507
  3. VALPROATE SODIUM [Suspect]
     Indication: EPILEPSY
     Route: 048
  4. GLUCOPHAGE [Suspect]
     Indication: DIABETES MELLITUS
     Route: 048
  5. DIAMICRON [Suspect]
     Indication: DIABETES MELLITUS
     Route: 048
  6. IMOVANE [Suspect]
     Indication: SLEEP DISORDER
     Route: 048
     Dates: start: 20100430
  7. NORFLOXACIN [Suspect]
     Indication: URINARY TRACT INFECTION
     Route: 048
     Dates: start: 20100504, end: 20100508
  8. EXELON [Suspect]
     Indication: COGNITIVE DISORDER
     Route: 048
     Dates: end: 20100508

REACTIONS (2)
  - EPILEPSY [None]
  - HYPONATRAEMIA [None]
